FAERS Safety Report 9009471 (Version 3)
Quarter: 2013Q1

REPORT INFORMATION
  Report Type: Spontaneous
  Country: FR (occurrence: FR)
  Receive Date: 20130111
  Receipt Date: 20130220
  Transmission Date: 20140127
  Serious: Yes (Other)
  Sender: FDA-Public Use
  Company Number: PHHY2013FR002172

PATIENT
  Age: 60 Year
  Sex: Male
  Weight: 84 kg

DRUGS (6)
  1. AMOXICILLIN SANDOZ [Suspect]
     Indication: TONSILLITIS
     Dosage: 4 DF, ONCE/SINGLE
     Route: 048
     Dates: start: 20130107, end: 20130107
  2. SECTRAL [Concomitant]
     Indication: CARDIAC DISORDER
     Dosage: 1 DF, UNK
     Dates: start: 201205
  3. DOLIPRANE [Concomitant]
     Dates: start: 20130107
  4. ADVIL [Concomitant]
     Dosage: 3 DF, UNK
  5. POLERY [Concomitant]
  6. DERINOX [Concomitant]

REACTIONS (7)
  - Fall [Recovered/Resolved]
  - Syncope [Recovered/Resolved]
  - Drug hypersensitivity [Recovered/Resolved]
  - Angioedema [Recovered/Resolved]
  - Malaise [Recovered/Resolved]
  - Pruritus [Recovered/Resolved]
  - Erythema [Recovered/Resolved]
